FAERS Safety Report 7326786-4 (Version None)
Quarter: 2011Q1

REPORT INFORMATION
  Report Type: 
  Country: None (occurrence: None)
  Receive Date: 20110302
  Receipt Date: 20091210
  Transmission Date: 20110831
  Serious: Yes (Other)
  Sender: FDA-Public Use
  Company Number: US-PFIZER INC-2009309150

PATIENT
  Sex: Male
  Weight: 36 kg

DRUGS (2)
  1. CEREBYX [Concomitant]
     Dosage: 15 MG/KG, UNK
     Dates: start: 20071123
  2. DILANTIN [Suspect]
     Indication: PROPHYLAXIS
     Dosage: 50 MG, UNK
     Route: 048
     Dates: start: 20071127, end: 20071209

REACTIONS (1)
  - STEVENS-JOHNSON SYNDROME [None]
